FAERS Safety Report 18058771 (Version 1)
Quarter: 2020Q3

REPORT INFORMATION
  Report Type: Spontaneous
  Country: US (occurrence: US)
  Receive Date: 20200722
  Receipt Date: 20200722
  Transmission Date: 20201103
  Serious: No
  Sender: FDA-Public Use
  Company Number: None

PATIENT
  Age: 56 Year
  Sex: Female
  Weight: 74.25 kg

DRUGS (1)
  1. ZEJULA [Suspect]
     Active Substance: NIRAPARIB
     Indication: OVARIAN CANCER
     Route: 048
     Dates: start: 20200529

REACTIONS (5)
  - Urinary tract infection [None]
  - Dizziness [None]
  - Therapy interrupted [None]
  - White blood cell count decreased [None]
  - Vertigo [None]

NARRATIVE: CASE EVENT DATE: 20200721
